FAERS Safety Report 8185868-8 (Version None)
Quarter: 2012Q1

REPORT INFORMATION
  Report Type: 
  Country: None (occurrence: None)
  Receive Date: 20120305
  Receipt Date: 20120224
  Transmission Date: 20120608
  Serious: Yes (Hospitalization)
  Sender: FDA-Public Use
  Company Number: IT-ASTRAZENECA-2012SE12739

PATIENT
  Age: 28379 Day
  Sex: Male

DRUGS (6)
  1. TENORETIC 100 [Suspect]
     Indication: HYPERTENSION
     Dosage: 50 MG/12.5 MG 1 DF DAILY
     Route: 048
     Dates: start: 20111201
  2. VASERETIC [Suspect]
     Indication: HYPERTENSION
     Dosage: 20 MG/12.5 MG, 1 DF DAILY
     Route: 048
     Dates: start: 20111201, end: 20120210
  3. SELEPARINA [Concomitant]
     Dosage: 3800 UI ANTIXA/0.4 ML INJECTAL SOLUTION
  4. LASIX [Suspect]
     Route: 048
     Dates: start: 20111201, end: 20120209
  5. LASIX [Suspect]
     Indication: CARDIAC FAILURE
     Route: 048
     Dates: start: 20120101, end: 20120209
  6. DIAZEPAM [Concomitant]
     Dosage: 0.5 % ORAL DROPS

REACTIONS (1)
  - RENAL FAILURE ACUTE [None]
